FAERS Safety Report 7849929-2 (Version None)
Quarter: 2011Q4

REPORT INFORMATION
  Report Type: 
  Country: None (occurrence: None)
  Receive Date: 20111026
  Receipt Date: 20111018
  Transmission Date: 20120403
  Serious: Yes (Other)
  Sender: FDA-Public Use
  Company Number: DE-UCBSA-043705

PATIENT
  Age: 45 Year
  Sex: Female
  Weight: 100 kg

DRUGS (2)
  1. KEPPRA [Suspect]
     Dosage: 5 TABLETS EACH 1000 MG OVER A PERIOD OF 24 H: TOTAL AMOUNT 5000 MG
     Route: 048
  2. OXCARBAZEPINE [Suspect]
     Dosage: 6 TABLETS EACH 600 MG OVER A PERIOD OF 24 H: TOTAL AMOUNT 3600 MG
     Route: 048

REACTIONS (2)
  - ACCIDENTAL EXPOSURE [None]
  - DIZZINESS [None]
